FAERS Safety Report 18206900 (Version 1)
Quarter: 2020Q3

REPORT INFORMATION
  Report Type: Spontaneous
  Country: US (occurrence: US)
  Receive Date: 20200828
  Receipt Date: 20200828
  Transmission Date: 20201103
  Serious: Yes (Death, Other)
  Sender: FDA-Public Use
  Company Number: US-BAYER-2020-174357

PATIENT
  Age: 34 Year
  Sex: Male

DRUGS (4)
  1. ASPIRIN (CARDIO) [Suspect]
     Active Substance: ASPIRIN
     Indication: ANEURYSM
     Dosage: 650 MG
  2. CLOPIDOGREL [Interacting]
     Active Substance: CLOPIDOGREL BISULFATE
     Dosage: 75 UNK
  3. CLOPIDOGREL [Interacting]
     Active Substance: CLOPIDOGREL BISULFATE
     Dosage: 600 MG
  4. ASPIRIN (CARDIO) [Interacting]
     Active Substance: ASPIRIN
     Indication: ANEURYSM
     Dosage: 325 UNK

REACTIONS (6)
  - Product use in unapproved indication [Fatal]
  - Off label use [Fatal]
  - Subdural haematoma [Fatal]
  - Labelled drug-drug interaction medication error [Fatal]
  - Subarachnoid haemorrhage [Fatal]
  - Intraventricular haemorrhage [Fatal]
